FAERS Safety Report 24078987 (Version 1)
Quarter: 2024Q3

REPORT INFORMATION
  Report Type: Spontaneous
  Country: US (occurrence: None)
  Receive Date: 20240710
  Receipt Date: 20240710
  Transmission Date: 20241016
  Serious: Yes (Disabling)
  Sender: Public
  Company Number: None

PATIENT
  Age: 47 Year
  Sex: Female
  Weight: 67.5 kg

DRUGS (5)
  1. RISPERDAL [Suspect]
     Active Substance: RISPERIDONE
     Indication: Psychomotor hyperactivity
     Dates: start: 20010222, end: 20010402
  2. homepathic drugs [Concomitant]
  3. KELP [Concomitant]
     Active Substance: KELP
  4. MAGNESIUM [Concomitant]
  5. SILICON DIOXIDE [Concomitant]
     Active Substance: SILICON DIOXIDE

REACTIONS (2)
  - Weight increased [None]
  - Breast enlargement [None]

NARRATIVE: CASE EVENT DATE: 20010222
